FAERS Safety Report 4372705-2 (Version None)
Quarter: 2004Q2

REPORT INFORMATION
  Report Type: 
  Country: None (occurrence: None)
  Receive Date: 20040526
  Receipt Date: 20040519
  Transmission Date: 20050107
  Serious: Yes (Hospitalization)
  Sender: FDA-Public Use
  Company Number: US-JNJFOC-20040504847

PATIENT
  Age: 78 Year
  Sex: Female

DRUGS (2)
  1. RISPERDAL [Suspect]
     Indication: FAMILY STRESS
     Dosage: ORAL
     Route: 048
     Dates: start: 20030301
  2. RISPERDAL CONSTA [Suspect]
     Dosage: 1 INJECTION ONLY
     Dates: start: 20040301, end: 20040301

REACTIONS (7)
  - CEREBROVASCULAR ACCIDENT [None]
  - DIZZINESS [None]
  - HALLUCINATION, AUDITORY [None]
  - PANIC ATTACK [None]
  - POLLAKIURIA [None]
  - SOMNOLENCE [None]
  - TREMOR [None]
